FAERS Safety Report 11016578 (Version 2)
Quarter: 2015Q2

REPORT INFORMATION
  Report Type: Spontaneous
  Country: US (occurrence: US)
  Receive Date: 20150412
  Receipt Date: 20150525
  Transmission Date: 20150821
  Serious: No
  Sender: FDA-Public Use
  Company Number: US-JNJFOC-20131014683

PATIENT
  Age: 63 Year
  Sex: Male
  Weight: 82.56 kg

DRUGS (7)
  1. PREDNISONE. [Concomitant]
     Active Substance: PREDNISONE
     Route: 065
  2. AZULFIDINE EN-TABS [Concomitant]
     Active Substance: SULFASALAZINE
     Route: 065
  3. NEXIUM [Concomitant]
     Active Substance: ESOMEPRAZOLE MAGNESIUM
     Route: 065
  4. SIMPONI ARIA [Suspect]
     Active Substance: GOLIMUMAB
     Indication: RHEUMATOID ARTHRITIS
     Route: 042
     Dates: start: 20131002, end: 20131002
  5. MOBIC [Concomitant]
     Active Substance: MELOXICAM
     Route: 065
  6. FOLIC ACID. [Concomitant]
     Active Substance: FOLIC ACID
     Route: 065
  7. ZEPTRA [Concomitant]
     Route: 065

REACTIONS (3)
  - Pruritus [Recovered/Resolved]
  - Rash [Recovered/Resolved]
  - Infusion related reaction [Recovered/Resolved]

NARRATIVE: CASE EVENT DATE: 20131002
